FAERS Safety Report 18355465 (Version 1)
Quarter: 2020Q4

REPORT INFORMATION
  Report Type: Other
  Country: UA (occurrence: UA)
  Receive Date: 20201007
  Receipt Date: 20201007
  Transmission Date: 20210114
  Serious: Yes (Death)
  Sender: FDA-Public Use
  Company Number: UA-ROCHE-2684778

PATIENT
  Age: 50 Year
  Sex: Male

DRUGS (2)
  1. TECENTRIQ [Suspect]
     Active Substance: ATEZOLIZUMAB
     Indication: RENAL CANCER
     Dosage: THE LATEST TECENTRIQ DOSE WAS ADMINISTERS ON 17/FEB/2020
     Route: 042
     Dates: start: 20200122, end: 20200217
  2. MYTOMYCIN [Concomitant]
     Active Substance: MITOMYCIN
     Dosage: 12 DAYS

REACTIONS (1)
  - Death [Fatal]

NARRATIVE: CASE EVENT DATE: 20200310
